FAERS Safety Report 17439869 (Version 1)
Quarter: 2020Q1

REPORT INFORMATION
  Report Type: Report from Study
  Country: JP (occurrence: JP)
  Receive Date: 20200220
  Receipt Date: 20200220
  Transmission Date: 20200409
  Serious: Yes (Other)
  Sender: FDA-Public Use
  Company Number: JP-CELLTRION INC.-2020JP019501

PATIENT

DRUGS (7)
  1. INFLIXIMAB BS FOR I.V. INFUSION100 MG (CTH) [Suspect]
     Active Substance: INFLIXIMAB
     Indication: CROHN^S DISEASE
     Dosage: 540 MG (WEIGHT: 53.5KG)
     Route: 041
     Dates: start: 20181113, end: 20181113
  2. INFLIXIMAB BS FOR I.V. INFUSION100 MG (CTH) [Suspect]
     Active Substance: INFLIXIMAB
     Dosage: 540 MG (WEIGHT: 53.4KG)
     Route: 041
     Dates: start: 20190312, end: 20190312
  3. INFLIXIMAB BS FOR I.V. INFUSION100 MG (CTH) [Suspect]
     Active Substance: INFLIXIMAB
     Dosage: 540 MG (WEIGHT: 53.4KG)
     Route: 041
     Dates: start: 20190507, end: 20190507
  4. AZATHIOPRINE. [Concomitant]
     Active Substance: AZATHIOPRINE
     Dosage: 25 MILLIGRAM/DAY
     Route: 048
     Dates: start: 20170105
  5. INFLIXIMAB BS FOR I.V. INFUSION100 MG (CTH) [Suspect]
     Active Substance: INFLIXIMAB
     Dosage: 540 MG (WEIGHT: 54KG)
     Route: 041
     Dates: start: 20190115, end: 20190115
  6. MESALAZINE [Concomitant]
     Active Substance: MESALAMINE
     Dosage: 3000 MILLIGRAM/DAY
     Route: 048
  7. INFLIXIMAB BS FOR I.V. INFUSION100 MG (CTH) [Suspect]
     Active Substance: INFLIXIMAB
     Dosage: 540 MG (WEIGHT: 54.2KG)
     Route: 041
     Dates: start: 20191016, end: 20191016

REACTIONS (5)
  - Asthma [Recovered/Resolved]
  - Overdose [Unknown]
  - Pneumonia [Recovered/Resolved]
  - Chronic gastritis [Not Recovered/Not Resolved]
  - Gastric polyps [Not Recovered/Not Resolved]

NARRATIVE: CASE EVENT DATE: 20181211
